FAERS Safety Report 21362538 (Version 1)
Quarter: 2022Q3

REPORT INFORMATION
  Report Type: Spontaneous
  Country: US (occurrence: US)
  Receive Date: 20220922
  Receipt Date: 20220922
  Transmission Date: 20221027
  Serious: No
  Sender: FDA-Public Use
  Company Number: US-AMGEN-USASP2022163013

PATIENT
  Sex: Male

DRUGS (12)
  1. OTEZLA [Suspect]
     Active Substance: APREMILAST
     Indication: Behcet^s syndrome
     Dosage: 30 MILLIGRAM, BID
     Route: 048
  2. PREDNISONE [Concomitant]
     Active Substance: PREDNISONE
  3. LOSARTAN [Concomitant]
     Active Substance: LOSARTAN
  4. POTASSIUM [Concomitant]
     Active Substance: POTASSIUM
  5. DIAZEPAM [Concomitant]
     Active Substance: DIAZEPAM
  6. LEVOTHYROXINE SODIUM [Concomitant]
     Active Substance: LEVOTHYROXINE SODIUM
  7. HYDROXYCHLOROQUINE SULFATE [Concomitant]
     Active Substance: HYDROXYCHLOROQUINE SULFATE
  8. KETOCONAZOLE [Concomitant]
     Active Substance: KETOCONAZOLE
  9. CLOBETASOL PROPIONATE [Concomitant]
     Active Substance: CLOBETASOL PROPIONATE
  10. LORATADINE [Concomitant]
     Active Substance: LORATADINE
  11. OMEPRAZOLE [Concomitant]
     Active Substance: OMEPRAZOLE
  12. COLCHICINE [Concomitant]
     Active Substance: COLCHICINE

REACTIONS (1)
  - Product dose omission issue [Unknown]
